FAERS Safety Report 9542863 (Version 4)
Quarter: 2013Q4

REPORT INFORMATION
  Report Type: Spontaneous
  Country: US (occurrence: US)
  Receive Date: 20130923
  Receipt Date: 20131009
  Transmission Date: 20140711
  Serious: No
  Sender: FDA-Public Use
  Company Number: US-PFIZER INC-2013272250

PATIENT
  Sex: Female

DRUGS (2)
  1. NEURONTIN [Suspect]
     Indication: NEURALGIA
     Dosage: UNK
  2. GABAPENTIN [Suspect]
     Indication: NEURALGIA
     Dosage: UNK

REACTIONS (2)
  - Somnolence [Unknown]
  - Drug ineffective [Unknown]
